FAERS Safety Report 9521389 (Version 1)
Quarter: 2013Q1

REPORT INFORMATION
  Report Type: Spontaneous
  Country: US (occurrence: None)
  Receive Date: 20130305
  Receipt Date: 20130305
  Transmission Date: 20140127
  Serious: Yes (Hospitalization)
  Sender: FDA-Public Use
  Company Number: 163-21880-12022767

PATIENT
  Age: 81 Year
  Sex: Male

DRUGS (7)
  1. REVLIMID [Suspect]
     Indication: MYELODYSPLASTIC SYNDROME
     Dosage: 20 MG, 21, PO
     Route: 048
     Dates: start: 20090520
  2. ASPIRIN (ACETYLSALICYLIC ACID) [Concomitant]
  3. IRON (IRON) [Concomitant]
  4. FUROSEMIDE (FUROSEMIDE) [Concomitant]
  5. NITROGLUCERIN (GLYCERYL TRINITRATE) [Concomitant]
  6. TAMSULOSIN HCL (TAMSULOSIN HYDROCHLORIDE) [Concomitant]
  7. TYLENOL WITH CODEINE #3 (PANADEINE CO) [Concomitant]

REACTIONS (1)
  - Pneumonia [None]
